FAERS Safety Report 23186142 (Version 1)
Quarter: 2023Q4

REPORT INFORMATION
  Report Type: Spontaneous
  Country: US (occurrence: None)
  Receive Date: 20231114
  Receipt Date: 20231114
  Transmission Date: 20240110
  Serious: Yes (Other)
  Sender: FDA-Public Use
  Company Number: None

PATIENT
  Age: 77 Year
  Sex: Female
  Weight: 54.43 kg

DRUGS (1)
  1. CIPROFLOXACIN HYDROCHLORIDE\DEXAMETHASONE [Suspect]
     Active Substance: CIPROFLOXACIN HYDROCHLORIDE\DEXAMETHASONE
     Indication: Ear infection
     Dosage: FREQUENCY : TWICE A DAY;?OTHER ROUTE : EAR DROPS;?
     Route: 050
     Dates: start: 20230923, end: 20230925

REACTIONS (2)
  - Dyspnoea [None]
  - Ear pruritus [None]

NARRATIVE: CASE EVENT DATE: 20230923
